FAERS Safety Report 16453519 (Version 2)
Quarter: 2019Q3

REPORT INFORMATION
  Report Type: Spontaneous
  Country: US (occurrence: US)
  Receive Date: 20190619
  Receipt Date: 20190909
  Transmission Date: 20191004
  Serious: No
  Sender: FDA-Public Use
  Company Number: US-SA-2019SA163915

PATIENT
  Age: 73 Year
  Sex: Female

DRUGS (2)
  1. DUPIXENT [Suspect]
     Active Substance: DUPILUMAB
     Indication: DERMATITIS ATOPIC
     Dosage: 600 MG, 1X
     Route: 058
     Dates: start: 20190501, end: 20190501
  2. DUPIXENT [Suspect]
     Active Substance: DUPILUMAB
     Dosage: 300 MG, QOW
     Route: 058
     Dates: start: 20190515

REACTIONS (4)
  - Vulvovaginal pain [Unknown]
  - Vulvovaginal burning sensation [Unknown]
  - Vulvovaginal rash [Unknown]
  - Vulvovaginal pruritus [Unknown]

NARRATIVE: CASE EVENT DATE: 201906
